FAERS Safety Report 4697090-8 (Version None)
Quarter: 2005Q2

REPORT INFORMATION
  Report Type: 
  Country: None (occurrence: None)
  Receive Date: 20050622
  Receipt Date: 20050506
  Transmission Date: 20051028
  Serious: Yes (Other)
  Sender: FDA-Public Use
  Company Number: JP-ROCHE-404688

PATIENT
  Age: 84 Year
  Sex: Female

DRUGS (14)
  1. TAMIFLU [Suspect]
     Indication: INFLUENZA
     Route: 048
     Dates: start: 20050307, end: 20050307
  2. TAMIFLU [Suspect]
     Route: 048
     Dates: start: 20050308, end: 20050310
  3. TAMIFLU [Suspect]
     Route: 048
     Dates: start: 20050311
  4. EUGLUCON [Suspect]
     Indication: DIABETES MELLITUS
     Route: 048
     Dates: start: 20050107, end: 20050309
  5. BASEN [Suspect]
     Indication: DIABETES MELLITUS
     Route: 048
     Dates: start: 20050107, end: 20050309
  6. RENIVEZE [Suspect]
     Indication: HYPERTENSION
     Route: 048
  7. MAGNESIUM OXIDE [Concomitant]
     Route: 048
  8. FERROMIA [Concomitant]
     Route: 048
  9. SELBEX [Concomitant]
     Route: 048
  10. HALCION [Concomitant]
     Route: 048
  11. SENNOSIDE [Concomitant]
     Route: 048
  12. ADONA [Concomitant]
     Route: 048
     Dates: start: 20050303, end: 20050317
  13. TRANSAMIN [Concomitant]
     Route: 048
     Dates: start: 20050303, end: 20050317
  14. JUVELA NICOTINATE [Concomitant]
     Route: 048

REACTIONS (6)
  - DECREASED APPETITE [None]
  - DEHYDRATION [None]
  - DEPRESSED LEVEL OF CONSCIOUSNESS [None]
  - HYPERGLYCAEMIA [None]
  - HYPOGLYCAEMIA [None]
  - NAUSEA [None]
